FAERS Safety Report 6213961-5 (Version None)
Quarter: 2009Q2

REPORT INFORMATION
  Report Type: 
  Country: None (occurrence: None)
  Receive Date: 20090602
  Receipt Date: 20090522
  Transmission Date: 20091009
  Serious: Yes (Hospitalization, Disabling)
  Sender: FDA-Public Use
  Company Number: WAES 0905NOR00004

PATIENT
  Age: 82 Year
  Sex: Female

DRUGS (9)
  1. COZAAR [Suspect]
     Indication: CARDIAC FAILURE
     Dosage: PO
     Route: 048
     Dates: start: 20030129, end: 20090417
  2. LOSARTAN POTASSIUM [Suspect]
     Dosage: 50 MG/DAILY PO
     Route: 048
     Dates: start: 20090418, end: 20090501
  3. ALENDRONATE SODIUM [Concomitant]
  4. CALCIUM CARBONATE [Concomitant]
  5. FUROSEMIDE [Concomitant]
  6. METOPROLOL TARTRATE [Concomitant]
  7. PREDNISOLONE [Concomitant]
  8. VITAMIN D (UNSPECIFIED) [Concomitant]
  9. WARFARIN SODIUM [Concomitant]

REACTIONS (7)
  - BLOOD PRESSURE DIASTOLIC DECREASED [None]
  - DIZZINESS [None]
  - FALL [None]
  - HEADACHE [None]
  - INTERNATIONAL NORMALISED RATIO INCREASED [None]
  - MEMORY IMPAIRMENT [None]
  - PELVIC FRACTURE [None]
